FAERS Safety Report 10347462 (Version 3)
Quarter: 2014Q3

REPORT INFORMATION
  Report Type: Spontaneous
  Country: RU (occurrence: RU)
  Receive Date: 20140729
  Receipt Date: 20140807
  Transmission Date: 20150326
  Serious: Yes (Other)
  Sender: FDA-Public Use
  Company Number: RU-009507513-1407RUS012502

PATIENT
  Age: 41 Year
  Sex: Female

DRUGS (1)
  1. IMPLANON [Suspect]
     Active Substance: ETONOGESTREL
     Dosage: UNK
     Route: 059
     Dates: start: 20140624, end: 20140723

REACTIONS (6)
  - Metastases to lymph nodes [Unknown]
  - Metastases to neck [Unknown]
  - Radical mastectomy [Unknown]
  - Breast oedema [Unknown]
  - Breast pain [Unknown]
  - Breast cancer metastatic [Unknown]

NARRATIVE: CASE EVENT DATE: 201407
